FAERS Safety Report 8949114 (Version 2)
Quarter: 2012Q4

REPORT INFORMATION
  Report Type: 
  Country: FR (occurrence: FR)
  Receive Date: 20121206
  Receipt Date: 20121220
  Transmission Date: 20130627
  Serious: Yes (Other)
  Sender: FDA-Public Use
  Company Number: FR-ALLERGAN-1213854US

PATIENT
  Age: 21 Year
  Sex: Female
  Weight: 59 kg

DRUGS (2)
  1. OZURDEX [Suspect]
     Indication: CENTRAL RETINAL VEIN OCCLUSION
     Dosage: 0.7 mg, single
     Route: 031
     Dates: start: 20120912, end: 20120912
  2. INSULIN [Concomitant]
     Indication: DIABETES

REACTIONS (2)
  - Exposure during pregnancy [Unknown]
  - Intraocular pressure increased [Recovering/Resolving]
